FAERS Safety Report 7449716-3 (Version None)
Quarter: 2011Q2

REPORT INFORMATION
  Report Type: 
  Country: None (occurrence: None)
  Receive Date: 20110421
  Receipt Date: 20110411
  Transmission Date: 20111010
  Serious: Yes (Hospitalization)
  Sender: FDA-Public Use
  Company Number: UTC-006283

PATIENT
  Age: 45 Year
  Sex: Female

DRUGS (2)
  1. REMODULIN [Suspect]
     Dosage: 77.76 UG/KG (0.054 UG/KG, 1 IN 1 MIN), INTRAVENOUS
     Route: 042
     Dates: start: 20101105
  2. TRACLEER [Suspect]

REACTIONS (1)
  - FLUID RETENTION [None]
